FAERS Safety Report 8574910-8 (Version None)
Quarter: 2012Q2

REPORT INFORMATION
  Report Type: 
  Country: None (occurrence: None)
  Receive Date: 20120423
  Receipt Date: 20091109
  Transmission Date: 20120825
  Serious: Yes (Life-Threatening)
  Sender: FDA-Public Use
  Company Number: PHEH2009US15354

PATIENT
  Age: 72 Year
  Sex: Female

DRUGS (5)
  1. EXJADE [Suspect]
     Indication: TRANSFUSION
     Dates: start: 20070417, end: 20080319
  2. EXJADE [Suspect]
     Indication: MYELOPROLIFERATIVE DISORDER
     Dates: start: 20070417, end: 20080319
  3. EXJADE [Suspect]
     Indication: PRODUCT USED FOR UNKNOWN INDICATION
     Dates: start: 20070417, end: 20080319
  4. EXJADE [Suspect]
     Indication: MYELODYSPLASTIC SYNDROME
     Dates: start: 20070417, end: 20080319
  5. AGRYLIN [Concomitant]

REACTIONS (4)
  - RENAL FAILURE [None]
  - BLOOD CREATININE INCREASED [None]
  - BLOOD UREA INCREASED [None]
  - GLOMERULAR FILTRATION RATE DECREASED [None]
